FAERS Safety Report 6454387-9 (Version None)
Quarter: 2009Q4

REPORT INFORMATION
  Report Type: 
  Country: None (occurrence: None)
  Receive Date: 20091124
  Receipt Date: 20091123
  Transmission Date: 20100525
  Serious: Yes (Death, Hospitalization)
  Sender: FDA-Public Use
  Company Number: US-JNJFOC-20060902009

PATIENT
  Age: 36 Year
  Sex: Male

DRUGS (3)
  1. ACETAMINOPHEN [Suspect]
  2. ACETAMINOPHEN [Suspect]
     Indication: PAIN
     Dosage: CHRONICALLY
  3. ASPIRIN [Suspect]
     Indication: PAIN
     Dosage: CHRONICALLY

REACTIONS (4)
  - DRUG TOXICITY [None]
  - HEPATIC FAILURE [None]
  - MEDICATION ERROR [None]
  - RENAL FAILURE [None]
